FAERS Safety Report 4887123-8 (Version None)
Quarter: 2006Q1

REPORT INFORMATION
  Report Type: 
  Country: None (occurrence: None)
  Receive Date: 20060120
  Receipt Date: 20050218
  Transmission Date: 20060701
  Serious: Yes (Hospitalization)
  Sender: FDA-Public Use
  Company Number: US-MERCK-0502USA02715

PATIENT
  Age: 66 Year
  Sex: Female
  Weight: 81 kg

DRUGS (8)
  1. VIOXX [Suspect]
     Indication: ARTHRALGIA
     Route: 048
     Dates: start: 20010101, end: 20040201
  2. GLUCOPHAGE [Concomitant]
     Route: 065
  3. INSULIN [Concomitant]
     Route: 065
  4. TOPROL-XL [Concomitant]
     Route: 065
  5. LASIX [Concomitant]
     Route: 065
  6. BENICAR [Concomitant]
     Route: 065
  7. PRAVACHOL [Concomitant]
     Route: 065
  8. [THERAPY UNSPECIFIED] [Concomitant]
     Route: 065

REACTIONS (4)
  - ANGINA PECTORIS [None]
  - ARTERIAL OCCLUSIVE DISEASE [None]
  - ARTHRALGIA [None]
  - NECK PAIN [None]
